FAERS Safety Report 14212583 (Version 6)
Quarter: 2018Q2

REPORT INFORMATION
  Report Type: Spontaneous
  Country: FR (occurrence: FR)
  Receive Date: 20171122
  Receipt Date: 20180410
  Transmission Date: 20180711
  Serious: Yes (Death, Other)
  Sender: FDA-Public Use
  Company Number: FR-PFIZER INC-2017500398

PATIENT
  Age: 68 Year
  Sex: Male
  Weight: 184 kg

DRUGS (8)
  1. INIPOMP [Suspect]
     Active Substance: PANTOPRAZOLE SODIUM
     Indication: PROPHYLAXIS
     Dosage: 360 MG, DAILY
     Route: 048
     Dates: start: 20171026, end: 20171102
  2. NORADRENALINE [Suspect]
     Active Substance: NOREPINEPHRINE
     Indication: CIRCULATORY COLLAPSE
     Dosage: 41.8 MG, 1X/DAY
     Route: 042
     Dates: start: 20171025, end: 20171103
  3. CEFTRIAXONE SODIUM. [Suspect]
     Active Substance: CEFTRIAXONE SODIUM
     Indication: OSTEITIS
     Dosage: 6 G, 1X/DAY
     Route: 042
     Dates: start: 20171025, end: 20171103
  4. PERFALGAN [Suspect]
     Active Substance: ACETAMINOPHEN
     Indication: ANALGESIC THERAPY
     Dosage: 15 G, DAILY
     Route: 042
     Dates: start: 20171026, end: 20171103
  5. HEPARIN SODIUM. [Suspect]
     Active Substance: HEPARIN SODIUM
     Indication: ATRIAL FIBRILLATION
     Dosage: 2.6 IU, 1X/DAY
     Route: 042
     Dates: start: 20171025, end: 20171102
  6. FLAGYL [Suspect]
     Active Substance: METRONIDAZOLE\METRONIDAZOLE HYDROCHLORIDE
     Indication: OSTEITIS
     Dosage: 13.5 G, 1X/DAY
     Route: 042
     Dates: start: 20171025, end: 20171103
  7. ZYVOXID [Suspect]
     Active Substance: LINEZOLID
     Indication: OSTEITIS
     Dosage: 10.8 G, 1X/DAY
     Route: 042
     Dates: start: 20171025, end: 20171103
  8. LASILIX [Suspect]
     Active Substance: FUROSEMIDE
     Indication: SODIUM RETENTION
     Dosage: 500 MG, 1X/DAY
     Route: 042
     Dates: start: 20171025, end: 20171102

REACTIONS (4)
  - Retroperitoneal haematoma [Fatal]
  - Shock haemorrhagic [Fatal]
  - Off label use [Fatal]
  - Overdose [Fatal]

NARRATIVE: CASE EVENT DATE: 20171026
